FAERS Safety Report 19501018 (Version 1)
Quarter: 2021Q3

REPORT INFORMATION
  Report Type: Report from Study
  Country: CA (occurrence: CA)
  Receive Date: 20210707
  Receipt Date: 20210707
  Transmission Date: 20211014
  Serious: Yes (Other)
  Sender: FDA-Public Use
  Company Number: CA-AMGEN-CANSL2021100917

PATIENT
  Age: 50 Year
  Sex: Female

DRUGS (8)
  1. DOMPERIDON [DOMPERIDONE] [Concomitant]
     Active Substance: DOMPERIDONE
  2. ESCITALOPRAM [Concomitant]
     Active Substance: ESCITALOPRAM OXALATE
  3. DICLOMAX [DICLOFENAC SODIUM] [Concomitant]
  4. NEXIUM I.V. [Concomitant]
     Active Substance: ESOMEPRAZOLE SODIUM
  5. TUMS [Concomitant]
     Active Substance: CALCIUM CARBONATE
  6. PROLIA [Suspect]
     Active Substance: DENOSUMAB
     Indication: OSTEOPOROSIS POSTMENOPAUSAL
     Dosage: UNK
     Route: 065
     Dates: start: 201806
  7. DILAUDID [Concomitant]
     Active Substance: HYDROMORPHONE HYDROCHLORIDE
  8. VITAMIN D [ERGOCALCIFEROL] [Concomitant]
     Active Substance: ERGOCALCIFEROL
     Dosage: 1000 IU

REACTIONS (5)
  - Tooth extraction [Unknown]
  - Exostosis [Recovering/Resolving]
  - Post procedural infection [Recovering/Resolving]
  - Osteorrhagia [Recovering/Resolving]
  - Loose tooth [Unknown]

NARRATIVE: CASE EVENT DATE: 20190801
